FAERS Safety Report 21044899 (Version 1)
Quarter: 2022Q3

REPORT INFORMATION
  Report Type: Spontaneous
  Country: US (occurrence: US)
  Receive Date: 20220705
  Receipt Date: 20220705
  Transmission Date: 20221027
  Serious: No
  Sender: FDA-Public Use
  Company Number: US-UPSHER-SMITH LABORATORIES, LLC-2021USL00718

PATIENT
  Age: 48 Year
  Sex: Male

DRUGS (2)
  1. TESTOSTERONE [Suspect]
     Active Substance: TESTOSTERONE
     Dosage: 5 G, APPLIED TO UPPER BODY, CHEST, STOMACH, ARMS, 1X/DAY
     Route: 061
     Dates: start: 202109, end: 2021
  2. TESTOSTERONE [Suspect]
     Active Substance: TESTOSTERONE
     Dosage: 5 G, APPLIED TO UPPER BODY, CHEST, STOMACH, ARMS, 1X/DAY
     Route: 061
     Dates: start: 2021

REACTIONS (2)
  - Feeling abnormal [Unknown]
  - Product administered at inappropriate site [Unknown]

NARRATIVE: CASE EVENT DATE: 20210901
